FAERS Safety Report 4465005-3 (Version None)
Quarter: 2004Q4

REPORT INFORMATION
  Report Type: 
  Country: None (occurrence: None)
  Receive Date: 20041004
  Receipt Date: 20040610
  Transmission Date: 20050328
  Serious: No
  Sender: FDA-Public Use
  Company Number: US-GLAXOSMITHKLINE-A0514130A

PATIENT
  Age: 62 Year
  Sex: Female

DRUGS (1)
  1. COREG [Suspect]
     Indication: HYPERTENSION
     Dosage: 6.25MG THREE TIMES PER DAY
     Route: 048
     Dates: start: 20010601

REACTIONS (1)
  - NIGHT SWEATS [None]
